FAERS Safety Report 16040608 (Version 3)
Quarter: 2019Q3

REPORT INFORMATION
  Report Type: Spontaneous
  Country: DE (occurrence: DE)
  Receive Date: 20190306
  Receipt Date: 20190910
  Transmission Date: 20191004
  Serious: Yes (Life-Threatening, Hospitalization, Other)
  Sender: FDA-Public Use
  Company Number: DE-AUROBINDO-AUR-APL-2019-010794

PATIENT
  Age: 40 Year
  Sex: Male

DRUGS (11)
  1. CLINDAMYCIN. [Concomitant]
     Active Substance: CLINDAMYCIN
     Indication: ANTIBIOTIC THERAPY
     Dosage: UNK
     Route: 065
  2. MODAFINIL. [Suspect]
     Active Substance: MODAFINIL
     Indication: PRODUCT USED FOR UNKNOWN INDICATION
     Dosage: THREE SINGLE DOSES OF 200 MILLIGRAM
     Route: 065
  3. NOREPINEPHRINE. [Concomitant]
     Active Substance: NOREPINEPHRINE
     Indication: PRODUCT USED FOR UNKNOWN INDICATION
     Dosage: UNK LOW DOSE
     Route: 065
  4. IBUPROFEN. [Suspect]
     Active Substance: IBUPROFEN
     Indication: PYREXIA
  5. ACETAMINOPHEN. [Suspect]
     Active Substance: ACETAMINOPHEN
     Indication: PYREXIA
  6. CLARITHROMYCIN. [Concomitant]
     Active Substance: CLARITHROMYCIN
     Indication: ANTIBIOTIC THERAPY
     Dosage: UNK
     Route: 065
  7. LEVOSIMENDAN [Concomitant]
     Active Substance: LEVOSIMENDAN
     Indication: PRODUCT USED FOR UNKNOWN INDICATION
     Dosage: UNK
     Route: 065
  8. IBUPROFEN. [Suspect]
     Active Substance: IBUPROFEN
     Indication: INFLUENZA LIKE ILLNESS
     Dosage: UNK
     Route: 065
  9. PIPERACILLIN AND TAZOBACTAM [Concomitant]
     Active Substance: PIPERACILLIN SODIUM\TAZOBACTAM SODIUM
     Indication: ANTIBIOTIC THERAPY
     Dosage: UNK
     Route: 065
  10. ACETAMINOPHEN. [Suspect]
     Active Substance: ACETAMINOPHEN
     Indication: INFLUENZA LIKE ILLNESS
     Dosage: UNK
     Route: 065
  11. SULTAMICILLIN [Concomitant]
     Active Substance: SULTAMICILLIN
     Indication: LOWER RESPIRATORY TRACT INFECTION BACTERIAL
     Dosage: UNK
     Route: 065

REACTIONS (19)
  - Eosinophilic myocarditis [Recovered/Resolved]
  - Respiratory failure [Recovered/Resolved]
  - Necrosis [Unknown]
  - Pneumonia [Recovered/Resolved]
  - Hypokinesia [Unknown]
  - Respiratory failure [Unknown]
  - Cardiogenic shock [Recovered/Resolved]
  - Drug hypersensitivity [Recovered/Resolved]
  - Pyrexia [Unknown]
  - Left ventricular dysfunction [Recovered/Resolved]
  - Therapeutic product effect incomplete [Unknown]
  - White blood cell count increased [Unknown]
  - C-reactive protein increased [Recovered/Resolved]
  - Dyspnoea [Unknown]
  - Pleural effusion [Recovered/Resolved]
  - Angina pectoris [Recovered/Resolved]
  - Eosinophilic pleural effusion [Recovered/Resolved]
  - Blood immunoglobulin E increased [Unknown]
  - Cardiac dysfunction [Unknown]
